FAERS Safety Report 22077148 (Version 1)
Quarter: 2023Q1

REPORT INFORMATION
  Report Type: Spontaneous
  Country: JP (occurrence: None)
  Receive Date: 20230309
  Receipt Date: 20230309
  Transmission Date: 20230418
  Serious: Yes (Other)
  Sender: FDA-Public Use
  Company Number: JP-Merck Healthcare KGaA-9387764

PATIENT
  Age: 5 Decade
  Sex: Female

DRUGS (1)
  1. METGLUCO [Suspect]
     Active Substance: METFORMIN HYDROCHLORIDE
     Indication: Type 2 diabetes mellitus
     Dosage: UNIT DOSE: 6 TABLETS
     Route: 048

REACTIONS (2)
  - Pancreatitis acute [Unknown]
  - Diarrhoea [Recovered/Resolved]
